FAERS Safety Report 8611018 (Version 3)
Quarter: 2012Q4

REPORT INFORMATION
  Report Type: Report from Study
  Country: SE (occurrence: SE)
  Receive Date: 20120612
  Receipt Date: 20121004
  Transmission Date: 20130627
  Serious: Yes (Hospitalization)
  Sender: FDA-Public Use
  Company Number: SE-ROCHE-1076859

PATIENT
  Age: 62 Year
  Sex: Male

DRUGS (3)
  1. XELODA [Suspect]
     Indication: GASTRIC CANCER
     Dosage: Last dose prior to SAE 3/Jun/2012, cumulative dose 73600 9units not provided)
     Route: 048
     Dates: start: 20120502
  2. EPIRUBICIN [Suspect]
     Indication: GASTRIC CANCER
     Dosage: Last dose prior to SAE 23/May/2012, cumulative dose 200 mg
     Route: 042
     Dates: start: 20120502
  3. OXALIPLATIN [Suspect]
     Indication: GASTRIC CANCER
     Dosage: Last dose prior to SAE 23/May/2012, cumulative dose 500 mg
     Route: 042
     Dates: start: 20120502

REACTIONS (3)
  - Neutropenia [Recovered/Resolved]
  - Gastrointestinal disorder [Recovered/Resolved]
  - Metabolic disorder [Recovered/Resolved]
